FAERS Safety Report 17192549 (Version 2)
Quarter: 2020Q1

REPORT INFORMATION
  Report Type: Spontaneous
  Country: US (occurrence: US)
  Receive Date: 20191223
  Receipt Date: 20200114
  Transmission Date: 20200409
  Serious: Yes (Hospitalization)
  Sender: FDA-Public Use
  Company Number: US-ASTRAZENECA-2019SF77776

PATIENT
  Age: 77 Year
  Sex: Female

DRUGS (3)
  1. NOVOLOG [Concomitant]
     Active Substance: INSULIN ASPART
     Indication: BLOOD GLUCOSE ABNORMAL
     Dosage: 20 UNITS SUB-Q IN THE MORNING, 15 UNITS SUB-Q WITH LUNCH AND 20 UNITS SUB-Q WITH DINNER
     Route: 058
  2. TRESIBA [Concomitant]
     Active Substance: INSULIN DEGLUDEC
     Indication: BLOOD GLUCOSE ABNORMAL
     Dosage: 50 UNITS SUB-Q AT NIGHT
     Route: 058
  3. BYDUREON BCISE [Suspect]
     Active Substance: EXENATIDE
     Indication: DIABETES MELLITUS
     Route: 058

REACTIONS (13)
  - Mass [Recovering/Resolving]
  - Tremor [Unknown]
  - Device leakage [Unknown]
  - Constipation [Recovering/Resolving]
  - Device issue [Unknown]
  - Urinary tract infection [Unknown]
  - Injection site pain [Recovered/Resolved]
  - Headache [Recovering/Resolving]
  - Abdominal distension [Recovering/Resolving]
  - Swelling [Recovering/Resolving]
  - Insomnia [Recovering/Resolving]
  - Discomfort [Recovering/Resolving]
  - Product dose omission [Recovered/Resolved]

NARRATIVE: CASE EVENT DATE: 2019
